FAERS Safety Report 6272175-3 (Version None)
Quarter: 2009Q3

REPORT INFORMATION
  Report Type: 
  Country: None (occurrence: None)
  Receive Date: 20090717
  Receipt Date: 20090715
  Transmission Date: 20100115
  Serious: Yes (Hospitalization)
  Sender: FDA-Public Use
  Company Number: US-BRISTOL-MYERS SQUIBB COMPANY-14703318

PATIENT
  Age: 79 Year
  Sex: Male
  Weight: 86 kg

DRUGS (4)
  1. ERBITUX [Suspect]
     Indication: NON-SMALL CELL LUNG CANCER
     Dosage: START DATE OF 1ST COURSE:16MAR09, AGENT START DATE:04MAY2009 NO. OF COURSES:2 250MG/M2
     Route: 042
     Dates: start: 20090504, end: 20090622
  2. CARBOPLATIN [Suspect]
     Indication: NON-SMALL CELL LUNG CANCER
     Dosage: START DATE OF 1ST COURSE:16MAR09,AGENT START DATE:26MAY2009 NO. OF COURSES:2 AUC=2/WK
     Dates: start: 20090526, end: 20090615
  3. TAXOL [Suspect]
     Indication: NON-SMALL CELL LUNG CANCER
     Dosage: START DATE OF 1ST COURSE:16MAR09, AGENT START DATE:26MAY2009 NO. OF COURSES:2 45MG/M2/WK
     Dates: start: 20090526, end: 20090615
  4. RADIATION THERAPY [Suspect]
     Indication: NON-SMALL CELL LUNG CANCER METASTATIC
     Dosage: 1 DF = 6000GY NO.OF FRACTIONS:30 NO.OF ELASPED DAYS:30
     Dates: start: 20090501

REACTIONS (1)
  - OESOPHAGEAL PERFORATION [None]
